FAERS Safety Report 10309506 (Version 1)
Quarter: 2014Q3

REPORT INFORMATION
  Report Type: Spontaneous
  Country: US (occurrence: US)
  Receive Date: 20140717
  Receipt Date: 20140717
  Transmission Date: 20150326
  Serious: Yes (Other)
  Sender: FDA-Public Use
  Company Number: US-MYLANLABS-2014S1016296

PATIENT
  Age: 69 Year
  Sex: Male

DRUGS (10)
  1. BICALUTAMIDE. [Suspect]
     Active Substance: BICALUTAMIDE
     Indication: PRIAPISM
     Dosage: DAILY; DISCONTINUED THEN RESUMED TWICE WEEKLY
     Route: 048
  2. BICALUTAMIDE. [Suspect]
     Active Substance: BICALUTAMIDE
     Indication: OFF LABEL USE
     Dosage: ONCE WEEKLY; THEN ONCE EVERY OTHER WEEK
     Route: 048
  3. BICALUTAMIDE. [Suspect]
     Active Substance: BICALUTAMIDE
     Indication: OFF LABEL USE
     Dosage: ONCE EVERY OTHER WEEK
     Route: 048
  4. SILDENAFIL [Concomitant]
     Active Substance: SILDENAFIL
     Indication: PRIAPISM
     Dosage: LOW-DOSE; DAILY
     Route: 048
  5. BICALUTAMIDE. [Suspect]
     Active Substance: BICALUTAMIDE
     Indication: OFF LABEL USE
     Dosage: DAILY; DISCONTINUED THEN RESUMED TWICE WEEKLY
     Route: 048
  6. BICALUTAMIDE. [Suspect]
     Active Substance: BICALUTAMIDE
     Indication: OFF LABEL USE
     Dosage: TWICE WEEKLY; THEN ONCE WEEKLY
     Route: 048
  7. BICALUTAMIDE. [Suspect]
     Active Substance: BICALUTAMIDE
     Indication: PRIAPISM
     Dosage: ONCE EVERY OTHER WEEK
     Route: 048
  8. BICALUTAMIDE. [Suspect]
     Active Substance: BICALUTAMIDE
     Indication: PRIAPISM
     Dosage: TWICE WEEKLY; THEN ONCE WEEKLY
     Route: 048
  9. BICALUTAMIDE. [Suspect]
     Active Substance: BICALUTAMIDE
     Indication: PRIAPISM
     Dosage: ONCE WEEKLY; THEN ONCE EVERY OTHER WEEK
     Route: 048
  10. HYDROCHLOROTHIAZIDE. [Concomitant]
     Active Substance: HYDROCHLOROTHIAZIDE
     Indication: HYPERTENSION
     Route: 065

REACTIONS (5)
  - Gynaecomastia [Recovered/Resolved with Sequelae]
  - Libido decreased [Recovering/Resolving]
  - Erectile dysfunction [Recovered/Resolved]
  - Testicular atrophy [Recovering/Resolving]
  - Prostate cancer [Recovering/Resolving]
